FAERS Safety Report 19686446 (Version 1)
Quarter: 2021Q3

REPORT INFORMATION
  Report Type: Spontaneous
  Country: NZ (occurrence: NZ)
  Receive Date: 20210811
  Receipt Date: 20210811
  Transmission Date: 20211014
  Serious: Yes (Death, Hospitalization)
  Sender: FDA-Public Use
  Company Number: NZ-ASTRAZENECA-2021A672205

PATIENT
  Age: 26385 Day
  Sex: Female
  Weight: 43 kg

DRUGS (1)
  1. OSIMERTINIB. [Suspect]
     Active Substance: OSIMERTINIB
     Indication: EGFR GENE MUTATION
     Route: 048
     Dates: start: 20210625, end: 20210803

REACTIONS (6)
  - Lung infiltration [Fatal]
  - Respiratory failure [Fatal]
  - Pleural effusion [Fatal]
  - Pneumonitis [Fatal]
  - Dyspnoea [Unknown]
  - Pyrexia [Unknown]

NARRATIVE: CASE EVENT DATE: 20210802
